FAERS Safety Report 19955110 (Version 6)
Quarter: 2022Q2

REPORT INFORMATION
  Report Type: Report from Study
  Country: DE (occurrence: DE)
  Receive Date: 20211014
  Receipt Date: 20220601
  Transmission Date: 20220721
  Serious: Yes (Hospitalization, Other)
  Sender: FDA-Public Use
  Company Number: DE-ROCHE-2091662

PATIENT
  Age: 52 Year
  Sex: Male
  Weight: 90 kg

DRUGS (114)
  1. OXYCODONE HYDROCHLORIDE [Suspect]
     Active Substance: OXYCODONE HYDROCHLORIDE
     Indication: Product used for unknown indication
     Dosage: 10 MG, UNK
     Route: 065
  2. OXYCODONE HYDROCHLORIDE [Suspect]
     Active Substance: OXYCODONE HYDROCHLORIDE
     Dosage: NEXT DOSE: 6 MG
     Route: 065
  3. OXYCODONE HYDROCHLORIDE [Suspect]
     Active Substance: OXYCODONE HYDROCHLORIDE
     Dosage: 10 MILLIGRAM (NEXT DOSE: 6 MG)
     Route: 065
  4. OXYCODONE HYDROCHLORIDE [Suspect]
     Active Substance: OXYCODONE HYDROCHLORIDE
     Dosage: 10 MILLIGRAM (NEXT DOSE: 6 MG)
     Route: 065
  5. OXYCODONE HYDROCHLORIDE [Suspect]
     Active Substance: OXYCODONE HYDROCHLORIDE
     Dosage: 10 MILLIGRAM (NEXT DOSE: 6 MG)
     Route: 065
  6. DOMINAL (PROTHIPENDYL HYDROCHLORIDE) [Suspect]
     Active Substance: PROTHIPENDYL HYDROCHLORIDE
     Indication: Product used for unknown indication
     Dosage: UNK
     Route: 065
  7. DOMINAL (PROTHIPENDYL HYDROCHLORIDE) [Suspect]
     Active Substance: PROTHIPENDYL HYDROCHLORIDE
     Dosage: 80 MG, UNK
     Route: 065
  8. OCRELIZUMAB [Suspect]
     Active Substance: OCRELIZUMAB
     Indication: Relapsing-remitting multiple sclerosis
     Dosage: 600 MG, DAILY
     Route: 042
     Dates: start: 20210305
  9. OCRELIZUMAB [Suspect]
     Active Substance: OCRELIZUMAB
     Dosage: 600 MG, TID
     Route: 042
     Dates: start: 20210907
  10. OCRELIZUMAB [Suspect]
     Active Substance: OCRELIZUMAB
     Dosage: 300 MG, UNK
     Route: 042
     Dates: start: 20180319, end: 20180319
  11. OCRELIZUMAB [Suspect]
     Active Substance: OCRELIZUMAB
     Dosage: 300 MG, UNK
     Route: 042
     Dates: start: 20180305, end: 20180305
  12. OCRELIZUMAB [Suspect]
     Active Substance: OCRELIZUMAB
     Dosage: 600 MG, MONTHLY
     Route: 042
     Dates: start: 20190902
  13. OCRELIZUMAB [Suspect]
     Active Substance: OCRELIZUMAB
     Dosage: 600 MG, MONTHLY (DOSAGE TEXT: 11/SEP/2018 AND 02/SEP/2019, RECEIVED SAME SUBSEQUENT DOSE OF OCRELIZU
     Route: 042
     Dates: start: 20180821, end: 20190311
  14. OCRELIZUMAB [Suspect]
     Active Substance: OCRELIZUMAB
     Dosage: 600 MG, MONTHLY
     Route: 042
     Dates: start: 20200306
  15. OCRELIZUMAB [Suspect]
     Active Substance: OCRELIZUMAB
     Dosage: UNK
     Route: 042
     Dates: start: 20180228
  16. OCRELIZUMAB [Suspect]
     Active Substance: OCRELIZUMAB
     Dosage: UNK
     Route: 065
  17. OCRELIZUMAB [Suspect]
     Active Substance: OCRELIZUMAB
     Dosage: UNK
     Route: 065
  18. CORTISONE [Suspect]
     Active Substance: CORTISONE
     Indication: Premedication
     Dosage: 100 MG, UNK
     Route: 042
     Dates: start: 20190311, end: 20190311
  19. CORTISONE [Suspect]
     Active Substance: CORTISONE
     Dosage: 100 MG, UNK
     Route: 065
     Dates: start: 20190311, end: 20190311
  20. CORTISONE [Suspect]
     Active Substance: CORTISONE
     Dosage: 4X 500MG
     Route: 042
     Dates: start: 20210625
  21. ACETAMINOPHEN [Concomitant]
     Active Substance: ACETAMINOPHEN
     Indication: Product used for unknown indication
     Dosage: 800 MG, UNK
     Route: 065
  22. ACETAMINOPHEN [Concomitant]
     Active Substance: ACETAMINOPHEN
     Dosage: 800 MG, UNK
     Route: 065
  23. ACETAMINOPHEN [Concomitant]
     Active Substance: ACETAMINOPHEN
     Dosage: 800 MG, UNK
     Route: 065
  24. ACETAMINOPHEN [Concomitant]
     Active Substance: ACETAMINOPHEN
     Dosage: 800 MG, UNK
     Route: 065
  25. ACETAMINOPHEN [Concomitant]
     Active Substance: ACETAMINOPHEN
     Dosage: 800 MG, UNK
     Route: 065
  26. AMLODIPINE [Concomitant]
     Active Substance: AMLODIPINE BESYLATE
     Indication: Product used for unknown indication
     Dosage: 5 MG, DAILY
     Route: 065
  27. AMLODIPINE [Concomitant]
     Active Substance: AMLODIPINE BESYLATE
     Dosage: 1-0-0
     Route: 065
  28. AMLODIPINE [Concomitant]
     Active Substance: AMLODIPINE BESYLATE
     Dosage: 1-0-0
     Route: 065
  29. CANDESARTAN [Concomitant]
     Active Substance: CANDESARTAN
     Indication: Pain
     Dosage: 16 MG, BID
     Route: 065
  30. CANDESARTAN [Concomitant]
     Active Substance: CANDESARTAN
     Dosage: 16 MILLIGRAM, BID (14-16 MG)
     Route: 065
     Dates: start: 20180227
  31. CANDESARTAN [Concomitant]
     Active Substance: CANDESARTAN
     Dosage: 16 MG, BID
     Route: 065
  32. CANDESARTAN [Concomitant]
     Active Substance: CANDESARTAN
     Dosage: 16 MILLIGRAM, BID (1-1-0)
     Route: 065
  33. CANDESARTAN [Concomitant]
     Active Substance: CANDESARTAN
     Dosage: 16 MG, BID
     Route: 065
  34. CANDESARTAN [Concomitant]
     Active Substance: CANDESARTAN
     Dosage: 16 MILLIGRAM, BID (1-1-0)
     Route: 065
  35. CANDESARTAN [Concomitant]
     Active Substance: CANDESARTAN
     Dosage: 16 MG, BID
     Route: 065
  36. CANDESARTAN [Concomitant]
     Active Substance: CANDESARTAN
     Dosage: 16 MILLIGRAM, BID (1-1-0)
  37. CANDESARTAN [Concomitant]
     Active Substance: CANDESARTAN
     Dosage: 16 MILLIGRAM, BID
  38. MIRTAZAPINE [Concomitant]
     Active Substance: MIRTAZAPINE
     Indication: Product used for unknown indication
     Dosage: 7.5 MG, IN THE EVENING
     Route: 065
  39. MIRTAZAPINE [Concomitant]
     Active Substance: MIRTAZAPINE
     Dosage: IN THE EVENING
     Route: 065
  40. MIRTAZAPINE [Concomitant]
     Active Substance: MIRTAZAPINE
     Dosage: 7.5 MILLIGRAM (IN THE EVENING)
     Route: 065
  41. MIRTAZAPINE [Concomitant]
     Active Substance: MIRTAZAPINE
     Dosage: IN THE EVENING
     Route: 065
  42. MIRTAZAPINE [Concomitant]
     Active Substance: MIRTAZAPINE
     Dosage: IN THE EVENING
     Route: 065
  43. DULOXETINE [Concomitant]
     Active Substance: DULOXETINE
     Indication: Depression
     Dosage: 30 MG, UNK
     Route: 048
     Dates: start: 20180710
  44. DULOXETINE [Concomitant]
     Active Substance: DULOXETINE
     Dosage: 30 MG, UNK
     Route: 065
  45. DULOXETINE [Concomitant]
     Active Substance: DULOXETINE
     Dosage: 60 MG, UNK
     Route: 065
  46. DULOXETINE [Concomitant]
     Active Substance: DULOXETINE
     Dosage: 60 MG, UNK
     Route: 048
     Dates: start: 20181005
  47. DULOXETINE [Concomitant]
     Active Substance: DULOXETINE
     Dosage: 60 MG, UNK
     Route: 065
  48. DULOXETINE [Concomitant]
     Active Substance: DULOXETINE
     Dosage: 30 MG, UNK
     Route: 065
  49. DULOXETINE [Concomitant]
     Active Substance: DULOXETINE
     Dosage: 60 MG, UNK
     Route: 065
  50. DULOXETINE [Concomitant]
     Active Substance: DULOXETINE
     Dosage: 30 MG, UNK
     Route: 048
  51. DULOXETINE [Concomitant]
     Active Substance: DULOXETINE
     Dosage: 60 MG, UNK
     Route: 065
  52. DULOXETINE [Concomitant]
     Active Substance: DULOXETINE
     Dosage: 30 MG, UNK
     Route: 048
  53. DULOXETINE [Concomitant]
     Active Substance: DULOXETINE
     Dosage: 60 MG, UNK
     Route: 065
  54. DULOXETINE [Concomitant]
     Active Substance: DULOXETINE
     Dosage: 30 MG, UNK
     Route: 048
  55. DULOXETINE [Concomitant]
     Active Substance: DULOXETINE
     Dosage: 60 MG, UNK
     Route: 065
  56. HERBALS [Concomitant]
     Active Substance: HERBALS
     Indication: Product used for unknown indication
     Dosage: UNK
     Route: 065
  57. NAPROXEN [Concomitant]
     Active Substance: NAPROXEN
     Indication: Product used for unknown indication
     Dosage: UNK
     Route: 065
  58. NAPROXEN [Concomitant]
     Active Substance: NAPROXEN
     Dosage: UNK
     Route: 065
  59. NAPROXEN [Concomitant]
     Active Substance: NAPROXEN
     Dosage: UNK
     Route: 065
  60. NAPROXEN [Concomitant]
     Active Substance: NAPROXEN
     Dosage: UNK
     Route: 065
  61. NAPROXEN [Concomitant]
     Active Substance: NAPROXEN
     Dosage: UNK
     Route: 065
  62. NALOXONE HYDROCHLORIDE\TILIDINE HYDROCHLORIDE [Concomitant]
     Active Substance: NALOXONE HYDROCHLORIDE\TILIDINE HYDROCHLORIDE
     Indication: Product used for unknown indication
     Dosage: 50 MG/4 MG
     Route: 065
  63. NALOXONE HYDROCHLORIDE\TILIDINE HYDROCHLORIDE [Concomitant]
     Active Substance: NALOXONE HYDROCHLORIDE\TILIDINE HYDROCHLORIDE
     Dosage: UNK (50 MG/4 MG)
     Route: 065
  64. ZOPICLONE [Concomitant]
     Active Substance: ZOPICLONE
     Indication: Pain
     Dosage: 7.5 MG, DAILY
     Route: 048
     Dates: start: 20170105
  65. ZOPICLONE [Concomitant]
     Active Substance: ZOPICLONE
     Dosage: 7.5 MG, UNK
     Route: 048
     Dates: start: 20180821
  66. DIMETHINDENE [Concomitant]
     Active Substance: DIMETHINDENE
     Indication: Product used for unknown indication
     Dosage: UNK
     Route: 042
     Dates: start: 20190311, end: 20190311
  67. DIMETHINDENE [Concomitant]
     Active Substance: DIMETHINDENE
     Dosage: 5 MG, UNK
     Route: 042
     Dates: start: 2018
  68. TRIMIPRAMINE [Concomitant]
     Active Substance: TRIMIPRAMINE
     Indication: Product used for unknown indication
     Dosage: DROPS AT NIGHT
     Route: 065
  69. TRIMIPRAMINE [Concomitant]
     Active Substance: TRIMIPRAMINE
     Dosage: DROPS AT NIGHT
     Route: 065
  70. TRIMIPRAMINE [Concomitant]
     Active Substance: TRIMIPRAMINE
     Dosage: UNK (DROPS AT NIGHT)
     Route: 065
  71. TRIMIPRAMINE [Concomitant]
     Active Substance: TRIMIPRAMINE
     Dosage: UNK (DROPS AT NIGHT)
     Route: 065
  72. TRIMIPRAMINE [Concomitant]
     Active Substance: TRIMIPRAMINE
     Dosage: DROPS AT NIGHT
  73. TRIMIPRAMINE [Concomitant]
     Active Substance: TRIMIPRAMINE
     Dosage: UNK (DROPS AT NIGHT)
     Route: 065
  74. ACETYLCYSTEINE [Concomitant]
     Active Substance: ACETYLCYSTEINE
     Indication: Product used for unknown indication
     Dosage: UNK
     Route: 065
  75. ACETYLCYSTEINE [Concomitant]
     Active Substance: ACETYLCYSTEINE
     Dosage: UNK
     Route: 065
  76. ACETYLCYSTEINE [Concomitant]
     Active Substance: ACETYLCYSTEINE
     Dosage: UNK
     Route: 065
  77. ACETYLCYSTEINE [Concomitant]
     Active Substance: ACETYLCYSTEINE
     Dosage: UNK
     Route: 065
  78. ACETYLCYSTEINE [Concomitant]
     Active Substance: ACETYLCYSTEINE
     Dosage: UNK
     Route: 065
  79. QUETIAPINE [Concomitant]
     Active Substance: QUETIAPINE
     Indication: Product used for unknown indication
     Dosage: 26 MG, 1/2 TABLET AS NEEDED AT NIGHT
     Route: 065
  80. QUETIAPINE [Concomitant]
     Active Substance: QUETIAPINE
     Dosage: 26 MILLIGRAM (1/2 TABLET AS NEEDED AT NIGHT)
     Route: 065
  81. QUETIAPINE [Concomitant]
     Active Substance: QUETIAPINE
     Dosage: 25 MILLIGRAM (1/2 TABLET AS NEEDED AT NIGHT)
     Route: 065
  82. QUETIAPINE [Concomitant]
     Active Substance: QUETIAPINE
     Dosage: 1/2 TABLET AS NEEDED AT NIGHT
     Route: 065
  83. PREGABALIN [Concomitant]
     Active Substance: PREGABALIN
     Indication: Product used for unknown indication
     Dosage: 50 MG, UNK (1-0-1)
     Route: 065
  84. PREGABALIN [Concomitant]
     Active Substance: PREGABALIN
     Dosage: 50 MILLIGRAM (1-0-1)
     Route: 065
  85. PREGABALIN [Concomitant]
     Active Substance: PREGABALIN
     Dosage: 1-0-1
     Route: 065
  86. PREGABALIN [Concomitant]
     Active Substance: PREGABALIN
     Dosage: 1-0-1
     Route: 065
  87. POLYETHYLENE GLYCOLS [Concomitant]
     Active Substance: POLYETHYLENE GLYCOLS
     Indication: Product used for unknown indication
     Dosage: UNK- (AS NEEDED)
     Route: 065
  88. POLYETHYLENE GLYCOLS [Concomitant]
     Active Substance: POLYETHYLENE GLYCOLS
     Dosage: UNK (AS NEEDED)
     Route: 065
  89. POLYETHYLENE GLYCOLS [Concomitant]
     Active Substance: POLYETHYLENE GLYCOLS
     Dosage: UNK (AS NEEDED)
     Route: 065
  90. POLYETHYLENE GLYCOLS [Concomitant]
     Active Substance: POLYETHYLENE GLYCOLS
     Dosage: AS NEEDED
  91. POLYETHYLENE GLYCOLS [Concomitant]
     Active Substance: POLYETHYLENE GLYCOLS
     Dosage: UNK (AS NEEDED)
     Route: 065
  92. POLYETHYLENE GLYCOLS [Concomitant]
     Active Substance: POLYETHYLENE GLYCOLS
     Dosage: AS NEEDED
  93. POLYETHYLENE GLYCOLS [Concomitant]
     Active Substance: POLYETHYLENE GLYCOLS
     Dosage: AS NEEDED
  94. IBUPROFEN [Concomitant]
     Active Substance: IBUPROFEN
     Indication: Product used for unknown indication
     Dosage: 800 G, UNK
     Route: 048
     Dates: start: 2013
  95. IBUPROFEN [Concomitant]
     Active Substance: IBUPROFEN
     Indication: Migraine
  96. HERBALS [Concomitant]
     Active Substance: HERBALS
     Indication: Product used for unknown indication
     Dosage: UNK
     Route: 065
  97. HERBALS [Concomitant]
     Active Substance: HERBALS
     Dosage: UNK
     Route: 065
  98. HERBALS [Concomitant]
     Active Substance: HERBALS
     Dosage: UNK
     Route: 065
  99. OCREVUS [Suspect]
     Active Substance: OCRELIZUMAB
     Indication: Relapsing-remitting multiple sclerosis
     Dosage: 600 MG, UNK
     Route: 042
     Dates: start: 20210305
  100. OCREVUS [Suspect]
     Active Substance: OCRELIZUMAB
     Dosage: 600 MG, UNK
     Route: 042
     Dates: start: 20210907
  101. OCREVUS [Suspect]
     Active Substance: OCRELIZUMAB
     Dosage: 600 MG, UNK
     Route: 042
     Dates: start: 20200306
  102. OCREVUS [Suspect]
     Active Substance: OCRELIZUMAB
     Dosage: 600 MG, UNK
     Route: 042
     Dates: start: 20190902
  103. OCREVUS [Suspect]
     Active Substance: OCRELIZUMAB
     Dosage: 300 MG, UNK
     Route: 042
     Dates: start: 20180319, end: 20180319
  104. OCREVUS [Suspect]
     Active Substance: OCRELIZUMAB
     Dosage: 300 MG, UNK
     Route: 042
     Dates: start: 20180305, end: 20180305
  105. OCREVUS [Suspect]
     Active Substance: OCRELIZUMAB
     Dosage: UNK
     Route: 042
     Dates: start: 20180228
  106. OCREVUS [Suspect]
     Active Substance: OCRELIZUMAB
     Dosage: UNK
     Route: 065
  107. OCREVUS [Suspect]
     Active Substance: OCRELIZUMAB
     Dosage: UNK
     Route: 065
  108. DOMINAL (PROTHIPENDYL HYDROCHLORIDE) [Suspect]
     Active Substance: PROTHIPENDYL HYDROCHLORIDE
     Indication: Product used for unknown indication
     Dosage: 80 MILLIGRAM
     Route: 065
  109. DOMINAL (PROTHIPENDYL HYDROCHLORIDE) [Suspect]
     Active Substance: PROTHIPENDYL HYDROCHLORIDE
     Dosage: 80 MILLIGRAM
     Route: 065
  110. MODERNA COVID-19 VACCINE [Suspect]
     Active Substance: ELASOMERAN
     Indication: COVID-19 immunisation
     Dosage: FIRST DOSE
     Route: 065
     Dates: start: 20210526
  111. MODERNA COVID-19 VACCINE [Suspect]
     Active Substance: ELASOMERAN
     Dosage: SECOND DOSE
     Route: 065
     Dates: start: 20210720
  112. AMLODIPINE BESYLATE [Concomitant]
     Active Substance: AMLODIPINE BESYLATE
     Indication: Product used for unknown indication
     Dosage: 5 MILLIGRAM, DAILY
     Route: 065
  113. AMLODIPINE BESYLATE [Concomitant]
     Active Substance: AMLODIPINE BESYLATE
     Dosage: 5 MILLIGRAM, DAILY
     Route: 065
  114. AMLODIPINE BESYLATE [Concomitant]
     Active Substance: AMLODIPINE BESYLATE
     Dosage: 5 MILLIGRAM, DAILY(1-0-0)

REACTIONS (48)
  - Multiple sclerosis [Unknown]
  - Therapeutic product effect decreased [Unknown]
  - Influenza like illness [Recovered/Resolved]
  - Cardiovascular insufficiency [Recovered/Resolved]
  - Diabetes mellitus [Not Recovered/Not Resolved]
  - Loss of consciousness [Recovered/Resolved]
  - Hypersensitivity [Unknown]
  - Paraesthesia [Recovered/Resolved]
  - Body temperature increased [Not Recovered/Not Resolved]
  - White blood cell count increased [Recovered/Resolved]
  - Pyrexia [Recovered/Resolved]
  - Dizziness [Recovered/Resolved]
  - C-reactive protein increased [Recovered/Resolved]
  - Back pain [Recovered/Resolved]
  - Blood immunoglobulin G decreased [Recovered/Resolved]
  - Influenza [Recovered/Resolved]
  - Depression [Unknown]
  - Vomiting [Recovered/Resolved]
  - Vaccination failure [Not Recovered/Not Resolved]
  - Infection [Recovered/Resolved]
  - Myalgia [Recovered/Resolved]
  - Pain [Unknown]
  - Erythema [Recovering/Resolving]
  - Neuralgia [Recovering/Resolving]
  - Asthenia [Recovered/Resolved]
  - Hypotension [Recovered/Resolved]
  - Nausea [Recovered/Resolved]
  - Intraocular pressure test [Recovered/Resolved]
  - Flushing [Recovered/Resolved]
  - Arthralgia [Recovering/Resolving]
  - Nervousness [Recovering/Resolving]
  - Nasopharyngitis [Recovered/Resolved]
  - Anxiety [Unknown]
  - Abnormal behaviour [Recovered/Resolved]
  - Inappropriate schedule of product administration [Unknown]
  - Nasopharyngitis [Not Recovered/Not Resolved]
  - Fatigue [Recovered/Resolved]
  - Headache [Recovered/Resolved]
  - Coronavirus infection [Recovered/Resolved]
  - Migraine [Not Recovered/Not Resolved]
  - Headache [Recovered/Resolved]
  - Fatigue [Recovered/Resolved]
  - Pyrexia [Recovered/Resolved]
  - Headache [Recovered/Resolved]
  - Nasopharyngitis [Recovered/Resolved]
  - Vomiting [Recovered/Resolved]
  - Neuralgia [Recovering/Resolving]
  - Sensory disturbance [Not Recovered/Not Resolved]

NARRATIVE: CASE EVENT DATE: 20180305
